FAERS Safety Report 6256005-1 (Version None)
Quarter: 2009Q2

REPORT INFORMATION
  Report Type: 
  Country: None (occurrence: None)
  Receive Date: 20090630
  Receipt Date: 20090630
  Transmission Date: 20091009
  Serious: Yes (Other)
  Sender: FDA-Public Use
  Company Number: None

PATIENT
  Age: 46 Year
  Sex: Female
  Weight: 70.3075 kg

DRUGS (1)
  1. AMBIEN CR [Suspect]
     Indication: INSOMNIA
     Dosage: 1 PILL DAILY PO
     Route: 048
     Dates: start: 20061101, end: 20070227

REACTIONS (7)
  - AMNESIA [None]
  - FACE INJURY [None]
  - HAEMORRHAGE [None]
  - INSOMNIA [None]
  - LACERATION [None]
  - SOMNOLENCE [None]
  - STICKY SKIN [None]
